FAERS Safety Report 9462697 (Version 6)
Quarter: 2013Q4

REPORT INFORMATION
  Report Type: Spontaneous
  Country: US (occurrence: US)
  Receive Date: 20130816
  Receipt Date: 20131015
  Transmission Date: 20140711
  Serious: No
  Sender: FDA-Public Use
  Company Number: US-PFIZER INC-2013235753

PATIENT
  Sex: Female

DRUGS (2)
  1. XALATAN [Suspect]
     Dosage: UNK
     Route: 047
  2. XALATAN [Suspect]
     Dosage: UNK

REACTIONS (4)
  - Poor quality drug administered [Unknown]
  - Eyelid disorder [Unknown]
  - Vitreous floaters [Unknown]
  - Product container seal issue [Unknown]
